FAERS Safety Report 8576920-3 (Version None)
Quarter: 2012Q3

REPORT INFORMATION
  Report Type: 
  Country: None (occurrence: None)
  Receive Date: 20120807
  Receipt Date: 20120731
  Transmission Date: 20120928
  Serious: Yes (Other)
  Sender: FDA-Public Use
  Company Number: PHHY2010JP11225

PATIENT
  Age: 38 Year
  Sex: Male

DRUGS (1)
  1. CERTICAN [Suspect]
     Indication: HEART TRANSPLANT
     Route: 048
     Dates: start: 20070101

REACTIONS (3)
  - IMMUNOSUPPRESSANT DRUG LEVEL INCREASED [None]
  - DIARRHOEA [None]
  - LYMPHOPROLIFERATIVE DISORDER [None]
